FAERS Safety Report 9725997 (Version 1)
Quarter: 2013Q4

REPORT INFORMATION
  Report Type: Spontaneous
  Country: SZ (occurrence: None)
  Receive Date: 20131118
  Receipt Date: 20131118
  Transmission Date: 20140711
  Serious: Yes (Hospitalization)
  Sender: FDA-Public Use
  Company Number: 2013036944

PATIENT
  Age: 4 Year
  Sex: Female

DRUGS (4)
  1. PRIVIGEN [Suspect]
     Indication: CONGENITAL HYPOGAMMAGLOBULINAEMIA
     Dosage: INTRAVENOUS (NOT OTHERWISE SPECIFIED)
     Route: 042
     Dates: start: 20121220, end: 20121220
  2. PNEUMOVAX [Suspect]
     Indication: CONGENITAL HYPOGAMMAGLOBULINAEMIA
     Dosage: INTRAMUSCULAR
     Route: 030
     Dates: start: 20130117, end: 20130117
  3. MAGNESIOCARD (MAGNESIUM ASPARTATE HYDROCHLORIDE)? [Concomitant]
  4. BUDESONIDE W/FORMOTEROL FUMARATE (BUDESONIDE W/FORMOTEROL FUMARATE) [Concomitant]

REACTIONS (4)
  - Convulsion [None]
  - Pyrexia [None]
  - Vomiting [None]
  - Headache [None]
